FAERS Safety Report 8078024-5 (Version None)
Quarter: 2012Q1

REPORT INFORMATION
  Report Type: 
  Country: None (occurrence: None)
  Receive Date: 20120127
  Receipt Date: 20110316
  Transmission Date: 20120608
  Serious: No
  Sender: FDA-Public Use
  Company Number: US-ABBOTT-10P-163-0679570-00

PATIENT
  Sex: Female

DRUGS (2)
  1. HUMIRA [Suspect]
     Route: 058
     Dates: start: 20100601, end: 20110316
  2. HUMIRA [Suspect]
     Indication: PSORIASIS
     Route: 058
     Dates: start: 20080601, end: 20090101

REACTIONS (9)
  - INSOMNIA [None]
  - PSORIASIS [None]
  - PAIN OF SKIN [None]
  - SKIN EXFOLIATION [None]
  - RASH [None]
  - PRURITUS [None]
  - DRUG INEFFECTIVE [None]
  - ERYTHEMA [None]
  - RASH PAPULAR [None]
